FAERS Safety Report 9247883 (Version 1)
Quarter: 2013Q1

REPORT INFORMATION
  Report Type: Spontaneous
  Country: US (occurrence: None)
  Receive Date: 20121130
  Receipt Date: 20121130
  Transmission Date: 20140127
  Serious: Yes (Other)
  Sender: FDA-Public Use
  Company Number: 342722

PATIENT
  Age: 63 Year
  Sex: Male
  Weight: 120.2 kg

DRUGS (2)
  1. NOVOLOG [Suspect]
     Indication: TYPE 1 DIABETES MELLITUS
     Dosage: 6 IU - 13 IU BEFORE MEALS DEPENDING ON THE SIZE OF THE MEAL, SUBCUTANEOUS
     Route: 058
     Dates: start: 2006
  2. LANTUS (INSULIN GLARGINE) [Suspect]
     Indication: TYPE 1 DIABETES MELLITUS
     Route: 058
     Dates: start: 2006

REACTIONS (2)
  - Wrong drug administered [None]
  - Blood glucose decreased [None]
